FAERS Safety Report 6880625-4 (Version None)
Quarter: 2010Q3

REPORT INFORMATION
  Report Type: 
  Country: None (occurrence: None)
  Receive Date: 20100727
  Receipt Date: 20100225
  Transmission Date: 20110219
  Serious: No
  Sender: FDA-Public Use
  Company Number: A0846675A

PATIENT
  Age: 56 Year
  Sex: Female

DRUGS (5)
  1. ZANTAC [Suspect]
     Dosage: 300MG PER DAY
     Route: 048
     Dates: start: 20061211, end: 20100218
  2. ARAVA [Concomitant]
  3. LEVOTHYROXINE [Concomitant]
  4. HUMIRA [Concomitant]
  5. ALBUTEROL [Concomitant]

REACTIONS (1)
  - DRUG SCREEN POSITIVE [None]
